FAERS Safety Report 5176459-1 (Version None)
Quarter: 2006Q4

REPORT INFORMATION
  Report Type: 
  Country: None (occurrence: None)
  Receive Date: 20061207
  Receipt Date: 20061123
  Transmission Date: 20070319
  Serious: Yes (Other)
  Sender: FDA-Public Use
  Company Number: 2006BI017154

PATIENT

DRUGS (11)
  1. ZEVALIN [Suspect]
     Indication: MANTLE CELL LYMPHOMA
     Dosage: 1X; IV
     Route: 042
  2. ZEVALIN [Suspect]
     Indication: MANTLE CELL LYMPHOMA
     Dosage: 0.4 MCI/KG; 1X/; IV
     Route: 042
  3. RITUXIMAB [Concomitant]
  4. CYCLOPHOSPHAMIDE [Concomitant]
  5. DOXORUBICIN HCL [Concomitant]
  6. PREDNISOLONE [Concomitant]
  7. VINCRISTINE [Concomitant]
  8. CARMUSTINE [Concomitant]
  9. ETOPOSIDE [Concomitant]
  10. ARA-C [Concomitant]
  11. ARA-C [Concomitant]

REACTIONS (1)
  - TRANSIENT ISCHAEMIC ATTACK [None]
